FAERS Safety Report 5641088-X (Version None)
Quarter: 2008Q1

REPORT INFORMATION
  Report Type: 
  Country: None (occurrence: None)
  Receive Date: 20080227
  Receipt Date: 20071128
  Transmission Date: 20080703
  Serious: No
  Sender: FDA-Public Use
  Company Number: A0617085A

PATIENT
  Age: 19 Year
  Sex: Male

DRUGS (2)
  1. NICORETTE [Suspect]
     Route: 002
     Dates: start: 20060811, end: 20060815
  2. NICORETTE [Suspect]
     Route: 002

REACTIONS (6)
  - ABDOMINAL PAIN UPPER [None]
  - DIZZINESS [None]
  - HEADACHE [None]
  - MALAISE [None]
  - NAUSEA [None]
  - VOMITING [None]
